FAERS Safety Report 5248155-3 (Version None)
Quarter: 2007Q1

REPORT INFORMATION
  Report Type: 
  Country: None (occurrence: None)
  Receive Date: 20070227
  Receipt Date: 20060331
  Transmission Date: 20070707
  Serious: No
  Sender: FDA-Public Use
  Company Number: US-BRISTOL-MYERS SQUIBB COMPANY-13332838

PATIENT
  Age: 68 Year
  Sex: Female
  Weight: 68 kg

DRUGS (6)
  1. GLUCOPHAGE [Suspect]
     Indication: DIABETES MELLITUS
  2. MOBIC [Concomitant]
  3. GLYBURIDE [Concomitant]
  4. PREMARIN [Concomitant]
  5. VITAMIN B COMPLEX CAP [Concomitant]
  6. CENTRUM SILVER [Concomitant]

REACTIONS (1)
  - BLOOD GLUCOSE INCREASED [None]
